FAERS Safety Report 7508020-5 (Version None)
Quarter: 2011Q2

REPORT INFORMATION
  Report Type: 
  Country: None (occurrence: None)
  Receive Date: 20110519
  Receipt Date: 20110504
  Transmission Date: 20111010
  Serious: Yes (Death, Hospitalization)
  Sender: FDA-Public Use
  Company Number: 2011MA005260

PATIENT
  Age: 71 Year
  Sex: Male
  Weight: 85 kg

DRUGS (7)
  1. PACLITAXEL [Suspect]
  2. TAMSULOSIN HCL [Concomitant]
  3. ATORVASTATIN [Concomitant]
  4. ATENOLOL [Concomitant]
  5. AMLODIPINE [Concomitant]
  6. OMEPRAZOLE [Concomitant]
  7. TADALAFIL [Concomitant]

REACTIONS (11)
  - HAEMATOCRIT DECREASED [None]
  - LEFT VENTRICULAR DYSFUNCTION [None]
  - POST PROCEDURAL HAEMORRHAGE [None]
  - VENTRICULAR FIBRILLATION [None]
  - THROMBOSIS IN DEVICE [None]
  - CARDIAC ARREST [None]
  - METABOLIC ACIDOSIS [None]
  - PROSTATE CANCER [None]
  - BUNDLE BRANCH BLOCK LEFT [None]
  - PULMONARY CONGESTION [None]
  - CORONARY ARTERY OCCLUSION [None]
